FAERS Safety Report 7821761-5 (Version None)
Quarter: 2011Q4

REPORT INFORMATION
  Report Type: 
  Country: None (occurrence: None)
  Receive Date: 20111018
  Receipt Date: 20110315
  Transmission Date: 20120403
  Serious: No
  Sender: FDA-Public Use
  Company Number: US-ASTRAZENECA-2011SE06460

PATIENT
  Age: 46 Year
  Sex: Female

DRUGS (3)
  1. ALLEGRA [Concomitant]
  2. SYMBICORT [Suspect]
     Indication: ASTHMA
     Dosage: 160/4.5 MCG TWO PUFFS TWO TIMES A DAY
     Route: 055
     Dates: start: 20100101
  3. VENTOLIN [Concomitant]

REACTIONS (4)
  - DRUG DOSE OMISSION [None]
  - TEMPERATURE INTOLERANCE [None]
  - COUGH [None]
  - DYSPNOEA [None]
